FAERS Safety Report 5714805-8 (Version None)
Quarter: 2008Q2

REPORT INFORMATION
  Report Type: 
  Country: None (occurrence: None)
  Receive Date: 20080423
  Receipt Date: 20080415
  Transmission Date: 20081010
  Serious: Yes (Hospitalization)
  Sender: FDA-Public Use
  Company Number: US-JNJFOC-20060601509

PATIENT
  Sex: Female
  Weight: 68.95 kg

DRUGS (6)
  1. ORTHO EVRA [Suspect]
     Indication: MENSTRUAL CYCLE MANAGEMENT
     Route: 062
  2. SINGULAIR [Concomitant]
  3. CLARITIN [Concomitant]
  4. ZOLOFT [Concomitant]
  5. BENADRYL [Concomitant]
  6. ALBUTEROL [Concomitant]
     Route: 055

REACTIONS (2)
  - OFF LABEL USE [None]
  - PELVIC VENOUS THROMBOSIS [None]
